FAERS Safety Report 6779188-3 (Version None)
Quarter: 2010Q2

REPORT INFORMATION
  Report Type: 
  Country: None (occurrence: None)
  Receive Date: 20100618
  Receipt Date: 20100610
  Transmission Date: 20101027
  Serious: Yes (Other)
  Sender: FDA-Public Use
  Company Number: BR-BRISTOL-MYERS SQUIBB COMPANY-15150030

PATIENT
  Age: 72 Year
  Sex: Female
  Weight: 64 kg

DRUGS (7)
  1. APROVEL [Suspect]
     Indication: HYPERTENSION
     Route: 048
  2. APROZIDE [Suspect]
     Indication: HYPERTENSION
     Dosage: APROZIDE 150 MG/TABS
     Route: 048
  3. VITAMIN D [Concomitant]
     Indication: BACK PAIN
     Dosage: 1DF-1TABS
     Route: 048
  4. LORAX [Concomitant]
     Dosage: 1DF-1TABS
     Route: 048
     Dates: start: 19790101
  5. NIFEDIPINE [Concomitant]
     Indication: HYPERTENSION
     Dosage: 2DF-2TABS 20MG
     Route: 048
     Dates: start: 20020101
  6. TYLENOL [Concomitant]
     Indication: PAIN
  7. ALENDRONATE SODIUM [Concomitant]
     Indication: BACK PAIN
     Dosage: 1DF-1TABS
     Route: 048

REACTIONS (1)
  - CATARACT [None]
